FAERS Safety Report 4263835-4 (Version None)
Quarter: 2004Q1

REPORT INFORMATION
  Report Type: 
  Country: None (occurrence: None)
  Receive Date: 20040102
  Receipt Date: 20031217
  Transmission Date: 20041129
  Serious: Yes (Hospitalization)
  Sender: FDA-Public Use
  Company Number: FR_031203319

PATIENT
  Age: 48 Year
  Sex: Male

DRUGS (4)
  1. ZYPREXA [Suspect]
     Indication: AGITATION
     Dosage: 5 MG/DAY
     Route: 048
     Dates: start: 20030912
  2. NICARDIPINE HCL [Concomitant]
  3. EUPRESSYL (URAPIDIL) [Concomitant]
  4. DEPAKENE [Concomitant]

REACTIONS (6)
  - ATRIAL FIBRILLATION [None]
  - BRADYCARDIA [None]
  - CREATININE RENAL CLEARANCE DECREASED [None]
  - SINOATRIAL BLOCK [None]
  - SINUS ARREST [None]
  - VENTRICULAR FIBRILLATION [None]
